FAERS Safety Report 6212630-5 (Version None)
Quarter: 2009Q2

REPORT INFORMATION
  Report Type: 
  Country: None (occurrence: None)
  Receive Date: 20090529
  Receipt Date: 20090522
  Transmission Date: 20091009
  Serious: Yes (Hospitalization)
  Sender: FDA-Public Use
  Company Number: TCI2009A01796

PATIENT
  Age: 48 Year
  Sex: Female

DRUGS (3)
  1. ACTOS [Suspect]
     Indication: TYPE 2 DIABETES MELLITUS
     Dosage: 15 MG (15 MG, 1 D) PER ORAL
     Route: 048
     Dates: start: 20081221, end: 20090207
  2. ALPHA GLUCOSIDASE INHIBITORS [Concomitant]
  3. HMG COA REDUCTASE INHIBITORS [Concomitant]

REACTIONS (2)
  - BRONCHITIS [None]
  - UPPER RESPIRATORY TRACT INFLAMMATION [None]
